FAERS Safety Report 25100271 (Version 1)
Quarter: 2025Q1

REPORT INFORMATION
  Report Type: Report from Study
  Country: US (occurrence: US)
  Receive Date: 20250320
  Receipt Date: 20250320
  Transmission Date: 20250408
  Serious: Yes (Hospitalization)
  Sender: ALEXION PHARMACEUTICALS
  Company Number: US-AstraZeneca-CH-00831433A

PATIENT

DRUGS (1)
  1. OSIMERTINIB [Suspect]
     Active Substance: OSIMERTINIB
     Indication: Neoplasm malignant

REACTIONS (4)
  - Diarrhoea [Unknown]
  - Vomiting [Unknown]
  - Viral infection [Unknown]
  - Product dose omission issue [Unknown]
